FAERS Safety Report 8845033 (Version 1)
Quarter: 2012Q4

REPORT INFORMATION
  Report Type: 
  Country: BE (occurrence: BE)
  Receive Date: 20121017
  Receipt Date: 20121017
  Transmission Date: 20130627
  Serious: Yes (Other)
  Sender: FDA-Public Use
  Company Number: BE-ELI_LILLY_AND_COMPANY-BE201210004332

PATIENT
  Age: 72 Year
  Sex: Male

DRUGS (5)
  1. ALIMTA [Suspect]
     Indication: NON-SMALL CELL LUNG CANCER STAGE IV
     Dosage: 500 mg/m2, unknown
     Route: 065
  2. CISPLATINE [Concomitant]
     Dosage: UNK
  3. FOLIC ACID [Concomitant]
     Indication: PREMEDICATION
     Dosage: UNK
     Route: 065
  4. VITAMIN B12 [Concomitant]
     Indication: PREMEDICATION
  5. MEDROL [Concomitant]
     Indication: PREMEDICATION

REACTIONS (3)
  - Cardiac failure [Unknown]
  - Ejection fraction decreased [Unknown]
  - Cardiomyopathy [Unknown]
